FAERS Safety Report 8390849-5 (Version None)
Quarter: 2012Q2

REPORT INFORMATION
  Report Type: 
  Country: None (occurrence: None)
  Receive Date: 20120529
  Receipt Date: 20120517
  Transmission Date: 20120825
  Serious: Yes (Death, Hospitalization, Other)
  Sender: FDA-Public Use
  Company Number: US-SANOFI-AVENTIS-2012SA035412

PATIENT
  Age: 57 Year
  Sex: Female

DRUGS (2)
  1. PLAVIX [Suspect]
     Indication: AORTIC ANEURYSM
     Route: 048
     Dates: start: 20020101
  2. PLAVIX [Suspect]
     Indication: CORONARY ARTERY BYPASS
     Route: 048
     Dates: start: 20020101

REACTIONS (2)
  - INFECTION [None]
  - GALLBLADDER DISORDER [None]
